FAERS Safety Report 13940619 (Version 4)
Quarter: 2018Q1

REPORT INFORMATION
  Report Type: Spontaneous
  Country: US (occurrence: US)
  Receive Date: 20170906
  Receipt Date: 20180319
  Transmission Date: 20180508
  Serious: Yes (Hospitalization, Other)
  Sender: FDA-Public Use
  Company Number: US-GLAXOSMITHKLINE-US2017GSK135070

PATIENT
  Sex: Female

DRUGS (5)
  1. NEXIUM [Concomitant]
     Active Substance: ESOMEPRAZOLE MAGNESIUM
  2. SORIATANE [Suspect]
     Active Substance: ACITRETIN
     Indication: TRANSIENT ACANTHOLYTIC DERMATOSIS
     Dosage: UNK
     Dates: start: 201508
  3. SORIATANE [Suspect]
     Active Substance: ACITRETIN
     Indication: PRURITUS
  4. SORIATANE [Suspect]
     Active Substance: ACITRETIN
     Indication: RASH
  5. OXYCONTIN [Concomitant]
     Active Substance: OXYCODONE HYDROCHLORIDE

REACTIONS (11)
  - Pruritus [Unknown]
  - Asthenia [Unknown]
  - Chemotherapy [Unknown]
  - Colon cancer [Unknown]
  - Oral mucosal blistering [Recovered/Resolved]
  - Colostomy [Unknown]
  - Rectal cancer [Recovered/Resolved with Sequelae]
  - Haemorrhage [Unknown]
  - Radiotherapy [Unknown]
  - Cancer surgery [Recovered/Resolved with Sequelae]
  - Oesophageal mucosal blister [Recovered/Resolved]

NARRATIVE: CASE EVENT DATE: 2017
